FAERS Safety Report 5994022-7 (Version None)
Quarter: 2008Q4

REPORT INFORMATION
  Report Type: 
  Country: None (occurrence: None)
  Receive Date: 20081212
  Receipt Date: 20081020
  Transmission Date: 20090506
  Serious: No
  Sender: FDA-Public Use
  Company Number: US-ABBOTT-08P-163-0472349-00

PATIENT
  Sex: Female
  Weight: 90.8 kg

DRUGS (5)
  1. HUMIRA [Suspect]
     Indication: PSORIATIC ARTHROPATHY
     Route: 058
     Dates: start: 20080510
  2. OXAPROZIN [Concomitant]
     Indication: DRUG USE FOR UNKNOWN INDICATION
  3. ETODOLAC [Concomitant]
     Indication: DRUG USE FOR UNKNOWN INDICATION
  4. M.V.I. [Concomitant]
     Indication: ROUTINE HEALTH MAINTENANCE
  5. OXAPROZIN [Concomitant]
     Indication: ANTIINFLAMMATORY THERAPY

REACTIONS (9)
  - CONTUSION [None]
  - DRUG DELIVERY SYSTEM MALFUNCTION [None]
  - INJECTION SITE EXTRAVASATION [None]
  - INJECTION SITE HAEMATOMA [None]
  - INJECTION SITE HAEMORRHAGE [None]
  - MYALGIA [None]
  - PAIN [None]
  - PSORIASIS [None]
  - PYREXIA [None]
